FAERS Safety Report 7278721-5 (Version None)
Quarter: 2011Q1

REPORT INFORMATION
  Report Type: 
  Country: None (occurrence: None)
  Receive Date: 20110207
  Receipt Date: 20110126
  Transmission Date: 20110831
  Serious: Yes (Hospitalization)
  Sender: FDA-Public Use
  Company Number: PHHY2011IT06143

PATIENT
  Sex: Male

DRUGS (1)
  1. AMOXICILLIN [Suspect]

REACTIONS (6)
  - PRURITUS [None]
  - CHEILITIS [None]
  - RASH [None]
  - STRAWBERRY TONGUE [None]
  - OEDEMA [None]
  - SKIN EXFOLIATION [None]
